FAERS Safety Report 11779202 (Version 1)
Quarter: 2015Q4

REPORT INFORMATION
  Report Type: Spontaneous
  Country: CA (occurrence: CA)
  Receive Date: 20151125
  Receipt Date: 20151125
  Transmission Date: 20160304
  Serious: Yes (Hospitalization)
  Sender: FDA-Public Use
  Company Number: CA-TEVA-612131ACC

PATIENT
  Age: 43 Year
  Sex: Female
  Weight: 34.96 kg

DRUGS (10)
  1. MAGNESIUM [Concomitant]
     Active Substance: MAGNESIUM
  2. DIVALPROEX SODIUM. [Suspect]
     Active Substance: DIVALPROEX SODIUM
     Indication: EPILEPSY
     Dosage: 1500 MILLIGRAM DAILY;
     Route: 048
  3. SULFAMETHOXAZOLE AND TRIMETHOPRIM [Concomitant]
     Active Substance: SULFAMETHOXAZOLE\TRIMETHOPRIM
  4. OXYBUTYNIN [Concomitant]
     Active Substance: OXYBUTYNIN
  5. VITAMIN D3 [Concomitant]
     Active Substance: CHOLECALCIFEROL
  6. CALCIUM [Concomitant]
     Active Substance: CALCIUM
  7. FOLIC ACID. [Concomitant]
     Active Substance: FOLIC ACID
  8. ACETAMINOPHEN. [Concomitant]
     Active Substance: ACETAMINOPHEN
  9. DOMPERIDONE [Concomitant]
     Active Substance: DOMPERIDONE
  10. LEVOTHYROXINE. [Concomitant]
     Active Substance: LEVOTHYROXINE

REACTIONS (6)
  - Confusional state [Recovered/Resolved]
  - Thrombocytopenia [Recovered/Resolved]
  - Ataxia [Recovered/Resolved]
  - Amnesia [Recovered/Resolved]
  - Haemoglobin decreased [Recovered/Resolved]
  - Cognitive disorder [Recovered/Resolved]
